FAERS Safety Report 10081344 (Version 3)
Quarter: 2014Q2

REPORT INFORMATION
  Report Type: Spontaneous
  Country: US (occurrence: US)
  Receive Date: 20140416
  Receipt Date: 20140501
  Transmission Date: 20141212
  Serious: Yes (Hospitalization)
  Sender: FDA-Public Use
  Company Number: US-B.I. PHARMACEUTICALS,INC./RIDGEFIELD-2013-BI-34684BP

PATIENT
  Sex: Male
  Weight: 145.15 kg

DRUGS (7)
  1. PRADAXA [Suspect]
     Indication: ATRIAL FIBRILLATION
     Dosage: 150 MG
     Route: 048
     Dates: start: 2011, end: 20120212
  2. PRADAXA [Suspect]
     Indication: ANTICOAGULANT THERAPY
  3. PRADAXA [Suspect]
     Indication: CEREBROVASCULAR ACCIDENT PROPHYLAXIS
  4. FISH OIL [Concomitant]
     Route: 065
  5. VITAMIN D3 [Concomitant]
     Route: 065
  6. COQ10 [Concomitant]
     Route: 065
  7. SIMVASTATIN [Concomitant]
     Route: 065

REACTIONS (10)
  - Haemorrhagic stroke [Unknown]
  - Cerebral haemorrhage [Unknown]
  - Acute respiratory failure [Unknown]
  - Cerebral artery occlusion [Unknown]
  - Cerebral infarction [Unknown]
  - Haemoptysis [Recovered/Resolved]
  - Bradycardia [Unknown]
  - Pneumonia [Unknown]
  - Malnutrition [Unknown]
  - Haemorrhage [Unknown]
